FAERS Safety Report 5852001-4 (Version None)
Quarter: 2008Q3

REPORT INFORMATION
  Report Type: 
  Country: None (occurrence: None)
  Receive Date: 20080820
  Receipt Date: 20080808
  Transmission Date: 20090109
  Serious: Yes (Hospitalization)
  Sender: FDA-Public Use
  Company Number: TW-PFIZER INC-2008066726

PATIENT
  Sex: Female
  Weight: 48 kg

DRUGS (12)
  1. SU-011,248 [Suspect]
     Indication: BREAST CANCER
     Route: 048
  2. STROCAIN [Concomitant]
     Route: 048
     Dates: start: 20080701, end: 20080808
  3. PINAVERIUM [Concomitant]
     Route: 048
     Dates: start: 20080701, end: 20080808
  4. LANSOPRAZOLE [Concomitant]
     Route: 048
     Dates: start: 20080709, end: 20080808
  5. HEPARIN [Concomitant]
     Dates: start: 20080801, end: 20080801
  6. KETOROLAC TROMETHAMINE [Concomitant]
     Dates: start: 20080806, end: 20080806
  7. METOCLOPRAMIDE [Concomitant]
     Dates: start: 20080806, end: 20080806
  8. FAMOTIDINE [Concomitant]
     Dates: start: 20080806, end: 20080806
  9. MORPHINE HCL ELIXIR [Concomitant]
     Dates: start: 20080806, end: 20080806
  10. MAGNESIUM OXIDE [Concomitant]
     Route: 048
     Dates: start: 20080806, end: 20080808
  11. PRIMPERAN INJ [Concomitant]
     Route: 048
     Dates: start: 20080806, end: 20080808
  12. SENNOSIDES [Concomitant]
     Route: 048
     Dates: start: 20080806, end: 20080808

REACTIONS (1)
  - ILEUS [None]
